FAERS Safety Report 11016653 (Version 3)
Quarter: 2016Q2

REPORT INFORMATION
  Report Type: Spontaneous
  Country: US (occurrence: US)
  Receive Date: 20150412
  Receipt Date: 20160530
  Transmission Date: 20160815
  Serious: Yes (Other)
  Sender: FDA-Public Use
  Company Number: US-JNJFOC-20140211303

PATIENT
  Sex: Female

DRUGS (8)
  1. ORTHO NOVUM [Suspect]
     Active Substance: MESTRANOL\NORETHINDRONE
     Indication: ORAL CONTRACEPTION
     Dosage: 1/35 DAILY FOR 3 CONSECUTIVE 28-DAY CYCLE,FOR HEALTHY SUBJECTS DAILY FOR 21 DAYS FOR 1- 28-DAY CYCLE
     Route: 048
  2. METHOTREXATE [Concomitant]
     Active Substance: METHOTREXATE
     Route: 065
  3. LEFLUNOMIDE. [Concomitant]
     Active Substance: LEFLUNOMIDE
     Route: 065
  4. DICLOFENAC [Concomitant]
     Active Substance: DICLOFENAC
     Route: 065
  5. TOCILIZUMAB [Suspect]
     Active Substance: TOCILIZUMAB
     Indication: RHEUMATOID ARTHRITIS
     Dosage: MORNING OF DAY 1 OF CYCLE 2 (STUDY DAY 29)
     Route: 042
  6. SULFASALAZINE. [Concomitant]
     Active Substance: SULFASALAZINE
     Route: 065
  7. AZATHIOPRINE. [Concomitant]
     Active Substance: AZATHIOPRINE
     Route: 065
  8. FOLIC ACID. [Concomitant]
     Active Substance: FOLIC ACID
     Route: 065

REACTIONS (16)
  - Mediastinal disorder [Unknown]
  - Metrorrhagia [Unknown]
  - Abdominal discomfort [Unknown]
  - Headache [Unknown]
  - Blood disorder [Unknown]
  - Respiratory disorder [Unknown]
  - Nervous system disorder [Unknown]
  - Gastrointestinal disorder [Unknown]
  - Infestation [Unknown]
  - Lymphatic disorder [Unknown]
  - Nausea [Unknown]
  - Neutropenia [Unknown]
  - Chest discomfort [Unknown]
  - Infection [Unknown]
  - Drug dose omission [Unknown]
  - White blood cell count decreased [Unknown]
